FAERS Safety Report 12997922 (Version 1)
Quarter: 2016Q4

REPORT INFORMATION
  Report Type: Spontaneous
  Country: US (occurrence: US)
  Receive Date: 20161205
  Receipt Date: 20161205
  Transmission Date: 20170207
  Serious: No
  Sender: FDA-Public Use
  Company Number: US-THE MEDICINES COMPANY-US-MDCO-16-00354

PATIENT
  Age: 80 Year
  Sex: Male

DRUGS (4)
  1. ORBACTIV [Suspect]
     Active Substance: ORITAVANCIN
     Indication: ENDOCARDITIS ENTEROCOCCAL
  2. SYNERCID [Concomitant]
     Active Substance: DALFOPRISTIN\QUINUPRISTIN
     Indication: ENDOCARDITIS ENTEROCOCCAL
     Dosage: NOT REPORTED
  3. DAPTOMYCIN. [Concomitant]
     Active Substance: DAPTOMYCIN
     Indication: ENDOCARDITIS ENTEROCOCCAL
     Dosage: NOT REPORTED
  4. ZYVOX [Concomitant]
     Active Substance: LINEZOLID
     Indication: ENDOCARDITIS ENTEROCOCCAL
     Dosage: NOT REPORTED

REACTIONS (2)
  - Off label use [Unknown]
  - No adverse event [Unknown]
